FAERS Safety Report 10409666 (Version 2)
Quarter: 2014Q3

REPORT INFORMATION
  Report Type: Spontaneous
  Country: AT (occurrence: AT)
  Receive Date: 20140826
  Receipt Date: 20140826
  Transmission Date: 20150326
  Serious: Yes (Life-Threatening, Hospitalization)
  Sender: FDA-Public Use
  Company Number: PHHY2014AT096967

PATIENT
  Age: 49 Year
  Sex: Female

DRUGS (3)
  1. FOLINIC ACID [Concomitant]
     Active Substance: LEUCOVORIN
     Indication: COLON CANCER
     Dates: start: 200507, end: 200603
  2. OXALIPLATIN. [Suspect]
     Active Substance: OXALIPLATIN
     Indication: COLON CANCER
     Dates: start: 200507, end: 200603
  3. FLUOROURACIL. [Concomitant]
     Active Substance: FLUOROURACIL
     Indication: COLON CANCER
     Dates: start: 200507, end: 200603

REACTIONS (6)
  - Haematemesis [Recovering/Resolving]
  - Anaemia [Recovering/Resolving]
  - Ascites [Recovered/Resolved]
  - Splenomegaly [Recovering/Resolving]
  - Portal hypertension [Recovering/Resolving]
  - Thrombocytopenia [Recovering/Resolving]
